FAERS Safety Report 17784157 (Version 1)
Quarter: 2020Q2

REPORT INFORMATION
  Report Type: Report from Study
  Country: US (occurrence: US)
  Receive Date: 20200513
  Receipt Date: 20200513
  Transmission Date: 20200714
  Serious: Yes (Hospitalization)
  Sender: FDA-Public Use
  Company Number: US-EISAI MEDICAL RESEARCH-EC-2020-074429

PATIENT
  Age: 53 Year
  Sex: Male
  Weight: 98.7 kg

DRUGS (2)
  1. ERIBULIN [Suspect]
     Active Substance: ERIBULIN
     Indication: SPINDLE CELL SARCOMA
     Route: 041
     Dates: start: 20200408, end: 20200504
  2. PEMBROLIZUMAB. [Suspect]
     Active Substance: PEMBROLIZUMAB
     Indication: SPINDLE CELL SARCOMA
     Route: 041
     Dates: start: 20200404, end: 20200504

REACTIONS (2)
  - Dyspnoea [Unknown]
  - Atrial fibrillation [Unknown]

NARRATIVE: CASE EVENT DATE: 20200505
